FAERS Safety Report 16358787 (Version 1)
Quarter: 2019Q2

REPORT INFORMATION
  Report Type: Spontaneous
  Country: ES (occurrence: ES)
  Receive Date: 20190527
  Receipt Date: 20190527
  Transmission Date: 20190711
  Serious: Yes (Death, Hospitalization, Other)
  Sender: FDA-Public Use
  Company Number: PHHY2019ES120621

PATIENT
  Age: 56 Year
  Sex: Female

DRUGS (8)
  1. SIMVASTATIN. [Concomitant]
     Active Substance: SIMVASTATIN
     Indication: DYSLIPIDAEMIA
     Dosage: 40 MG, QD
     Route: 065
  2. CASPOFUNGIN [Suspect]
     Active Substance: CASPOFUNGIN
     Dosage: 50 MG, UNK
     Route: 065
  3. AMPHOTERICIN B, LIPOSOME [Suspect]
     Active Substance: AMPHOTERICIN B
     Indication: ASPERGILLUS INFECTION
     Dosage: UNK
     Route: 055
  4. CLAVULANIC ACID [Concomitant]
     Active Substance: CLAVULANIC ACID
     Indication: PRODUCT USED FOR UNKNOWN INDICATION
     Dosage: UNK
     Route: 065
  5. AMOXICILLIN. [Concomitant]
     Active Substance: AMOXICILLIN
     Indication: PRODUCT USED FOR UNKNOWN INDICATION
     Dosage: UNK
     Route: 065
  6. CASPOFUNGIN [Suspect]
     Active Substance: CASPOFUNGIN
     Indication: ASPERGILLUS INFECTION
     Dosage: 70 MG, UNK
     Route: 065
  7. VORICONAZOLE. [Suspect]
     Active Substance: VORICONAZOLE
     Indication: ASPERGILLUS INFECTION
     Dosage: 6 MG/KG, BID
     Route: 042
  8. VORICONAZOLE. [Suspect]
     Active Substance: VORICONAZOLE
     Dosage: 4 MG/KG, BID
     Route: 042

REACTIONS (4)
  - Disease progression [Fatal]
  - Drug ineffective [Fatal]
  - Bronchopulmonary aspergillosis [Fatal]
  - Off label use [Unknown]
